FAERS Safety Report 9639056 (Version 2)
Quarter: 2013Q4

REPORT INFORMATION
  Report Type: Spontaneous
  Country: SE (occurrence: SE)
  Receive Date: 20131022
  Receipt Date: 20131213
  Transmission Date: 20140711
  Serious: Yes (Other)
  Sender: FDA-Public Use
  Company Number: SE-GLAXOSMITHKLINE-A1045949A

PATIENT
  Age: 64 Year
  Sex: Female

DRUGS (7)
  1. NICORETTE 4MG GUM [Suspect]
     Indication: SMOKING CESSATION THERAPY
     Route: 002
     Dates: start: 20131006, end: 20131007
  2. NICORETTE 2 MG [Concomitant]
     Indication: SMOKING CESSATION THERAPY
     Route: 002
  3. SODIUM CHLORIDE [Concomitant]
     Indication: HYPERSENSITIVITY
     Route: 045
  4. RHINOCORT [Concomitant]
     Indication: HYPERSENSITIVITY
     Route: 045
  5. LOMUSOL [Concomitant]
     Indication: HYPERSENSITIVITY
     Route: 045
  6. BETAPRED [Concomitant]
     Indication: HYPERSENSITIVITY
     Route: 065
  7. DIMETIKON [Concomitant]
     Indication: GASTRIC DISORDER
     Route: 065

REACTIONS (12)
  - Feeling abnormal [Recovering/Resolving]
  - Laryngospasm [Recovering/Resolving]
  - Feeling drunk [Recovering/Resolving]
  - Hypersensitivity [Recovering/Resolving]
  - Feeling abnormal [Recovered/Resolved]
  - Cough [Recovering/Resolving]
  - Dizziness [Recovering/Resolving]
  - Pallor [Recovering/Resolving]
  - Oropharyngeal pain [Recovering/Resolving]
  - Dysphonia [Recovering/Resolving]
  - Dyspnoea [Recovering/Resolving]
  - Product quality issue [Unknown]
